FAERS Safety Report 11462362 (Version 1)
Quarter: 2015Q3

REPORT INFORMATION
  Report Type: Spontaneous
  Country: US (occurrence: US)
  Receive Date: 20150831
  Receipt Date: 20150831
  Transmission Date: 20151125
  Serious: No
  Sender: FDA-Public Use
  Company Number: US-ELI_LILLY_AND_COMPANY-US201011001925

PATIENT
  Age: 74 Year
  Sex: Female

DRUGS (2)
  1. XANAX [Concomitant]
     Active Substance: ALPRAZOLAM
     Dosage: 0.5 MG, AS NEEDED
  2. CYMBALTA [Suspect]
     Active Substance: DULOXETINE HYDROCHLORIDE
     Indication: ANXIETY
     Dosage: 30 MG, EACH MORNING
     Dates: start: 20101028

REACTIONS (4)
  - Listless [Not Recovered/Not Resolved]
  - Crying [Unknown]
  - Dysphoria [Not Recovered/Not Resolved]
  - Nausea [Not Recovered/Not Resolved]
